FAERS Safety Report 24377589 (Version 1)
Quarter: 2024Q3

REPORT INFORMATION
  Report Type: Spontaneous
  Country: US (occurrence: US)
  Receive Date: 20240930
  Receipt Date: 20240930
  Transmission Date: 20241017
  Serious: No
  Sender: ENDO
  Company Number: ENDG24-01147

PATIENT
  Sex: Female

DRUGS (2)
  1. QUESTRAN [Suspect]
     Active Substance: CHOLESTYRAMINE
     Indication: Diarrhoea
     Dosage: UNK UNKNOWN, DAILY
     Route: 065
  2. QUESTRAN [Suspect]
     Active Substance: CHOLESTYRAMINE
     Indication: Diarrhoea
     Dosage: UNK UNKNOWN, DAILY
     Route: 065

REACTIONS (2)
  - Dementia [Unknown]
  - Off label use [Unknown]
